FAERS Safety Report 8551135-3 (Version None)
Quarter: 2012Q3

REPORT INFORMATION
  Report Type: 
  Country: None (occurrence: None)
  Receive Date: 20120730
  Receipt Date: 20120724
  Transmission Date: 20120928
  Serious: Yes (Hospitalization)
  Sender: FDA-Public Use
  Company Number: US-GILEAD-2012-0057963

PATIENT
  Sex: Female

DRUGS (2)
  1. COUMADIN [Suspect]
  2. LETAIRIS [Suspect]
     Indication: PRODUCT USED FOR UNKNOWN INDICATION
     Dosage: 10 MG, UNK
     Route: 048
     Dates: start: 20120111

REACTIONS (5)
  - DIALYSIS [None]
  - RENAL DISORDER [None]
  - PNEUMONIA [None]
  - MECHANICAL VENTILATION [None]
  - DYSPNOEA [None]
